FAERS Safety Report 6713437-2 (Version None)
Quarter: 2010Q2

REPORT INFORMATION
  Report Type: 
  Country: None (occurrence: None)
  Receive Date: 20100506
  Receipt Date: 20100501
  Transmission Date: 20101027
  Serious: Yes (Hospitalization)
  Sender: FDA-Public Use
  Company Number: DE-ROCHE-701281

PATIENT
  Age: 68 Year
  Sex: Male

DRUGS (7)
  1. BEVACIZUMAB [Suspect]
     Dosage: BIWEEKLY
     Route: 042
     Dates: start: 20090908
  2. IRINOTECAN HCL [Suspect]
     Dosage: BIWEEKLY
     Route: 042
     Dates: start: 20090908
  3. FLUOROURACIL [Suspect]
     Dosage: BIWEEKLY
     Route: 042
     Dates: start: 20090908
  4. FOLINIC ACID [Suspect]
     Dosage: BIWEEKLY
     Route: 042
     Dates: start: 20090908
  5. SIMVASTATIN [Concomitant]
  6. SPIRIVA [Concomitant]
  7. BAMBEC [Concomitant]

REACTIONS (1)
  - MUCOSAL INFLAMMATION [None]
